FAERS Safety Report 9210953 (Version 2)
Quarter: 2013Q2

REPORT INFORMATION
  Report Type: Report from Study
  Country: DE (occurrence: DE)
  Receive Date: 20130404
  Receipt Date: 20130502
  Transmission Date: 20140414
  Serious: Yes (Hospitalization)
  Sender: FDA-Public Use
  Company Number: DE-UCBSA-081933

PATIENT
  Sex: Female

DRUGS (6)
  1. VIMPAT [Suspect]
     Indication: EPILEPSY
     Dosage: STARTING DOSE 50 MG/DAY
     Dates: start: 20101129
  2. VIMPAT [Suspect]
     Indication: EPILEPSY
     Dosage: DOSE AT VISIT 300 MG/DAY
     Dates: end: 2011
  3. LEVETIRACETAM [Concomitant]
     Indication: EPILEPSY
     Dosage: DOSE 2500 MG/DAY
  4. OXCARBAZEPINE [Concomitant]
     Indication: EPILEPSY
     Dosage: DOSE 1800 MG/DAY
  5. TOPIRAMATE [Concomitant]
     Indication: EPILEPSY
     Dosage: DOSE 150 MG/DAY
  6. BROMIDE [Concomitant]
     Indication: EPILEPSY
     Dosage: DOSE 2550 MG/DAY

REACTIONS (1)
  - Grand mal convulsion [Unknown]
